FAERS Safety Report 6203746-8 (Version None)
Quarter: 2009Q2

REPORT INFORMATION
  Report Type: 
  Country: None (occurrence: None)
  Receive Date: 20090526
  Receipt Date: 20090526
  Transmission Date: 20091009
  Serious: Yes (Other)
  Sender: FDA-Public Use
  Company Number: None

PATIENT
  Age: 53 Year
  Sex: Female
  Weight: 66.2252 kg

DRUGS (1)
  1. LEVAQUIN [Suspect]
     Indication: SINUSITIS
     Dosage: 1 DAILY PO
     Route: 048
     Dates: start: 20090316, end: 20090317

REACTIONS (5)
  - LIP SWELLING [None]
  - SKIN ULCER [None]
  - SWELLING FACE [None]
  - SWOLLEN TONGUE [None]
  - TONGUE ULCERATION [None]
